FAERS Safety Report 9939461 (Version 1)
Quarter: 2014Q1

REPORT INFORMATION
  Report Type: Report from Study
  Country: US (occurrence: US)
  Receive Date: 20140303
  Receipt Date: 20140303
  Transmission Date: 20141002
  Serious: No
  Sender: FDA-Public Use
  Company Number: US-ABBVIE-13P-163-1035675-00

PATIENT
  Age: 39 Year
  Sex: Female

DRUGS (2)
  1. HUMIRA [Suspect]
     Indication: COLITIS ULCERATIVE
     Route: 058
     Dates: start: 20120501
  2. ZOLOFT [Concomitant]
     Indication: ANXIETY
     Dosage: DAILY

REACTIONS (2)
  - Incorrect dose administered [Recovering/Resolving]
  - Injection site papule [Recovering/Resolving]
